FAERS Safety Report 9892251 (Version 1)
Quarter: 2014Q1

REPORT INFORMATION
  Report Type: Spontaneous
  Country: US (occurrence: US)
  Receive Date: 20140212
  Receipt Date: 20140212
  Transmission Date: 20141002
  Serious: Yes (Other)
  Sender: FDA-Public Use
  Company Number: CHPA2014US002377

PATIENT
  Age: 47 Year
  Sex: Female

DRUGS (4)
  1. EXCEDRIN TENSION HEADACHE [Suspect]
     Indication: PAIN PROPHYLAXIS
     Dosage: 2 DF, UNK
     Route: 048
     Dates: start: 2007
  2. EXCEDRIN TENSION HEADACHE [Suspect]
     Indication: OFF LABEL USE
  3. EXCEDRIN MIGRAINE [Suspect]
     Indication: TENSION HEADACHE
     Route: 048
  4. EXCEDRIN MIGRAINE [Suspect]
     Indication: OFF LABEL USE

REACTIONS (4)
  - Intervertebral disc degeneration [Not Recovered/Not Resolved]
  - Tendon injury [Recovering/Resolving]
  - Drug ineffective for unapproved indication [Unknown]
  - Drug ineffective [Unknown]
